FAERS Safety Report 20941248 (Version 9)
Quarter: 2022Q4

REPORT INFORMATION
  Report Type: Report from Study
  Country: CA (occurrence: CA)
  Receive Date: 20220609
  Receipt Date: 20221130
  Transmission Date: 20230113
  Serious: Yes (Other)
  Sender: FDA-Public Use
  Company Number: CA-BRISTOL-MYERS SQUIBB COMPANY-2022-049630

PATIENT
  Age: 77 Year
  Sex: Male
  Weight: 55.7 kg

DRUGS (5)
  1. OPDIVO [Suspect]
     Active Substance: NIVOLUMAB
     Indication: Pancreatic carcinoma
     Route: 042
     Dates: start: 20220526
  2. OPDIVO [Suspect]
     Active Substance: NIVOLUMAB
     Dosage: DOSE 360 MG: Q 28 DAYS?EXPIRY DATE: 31-AUG-2024
     Route: 042
     Dates: start: 20220526, end: 20220921
  3. OPDIVO [Suspect]
     Active Substance: NIVOLUMAB
     Route: 042
     Dates: start: 20220526
  4. YERVOY [Suspect]
     Active Substance: IPILIMUMAB
     Indication: Pancreatic carcinoma
     Dosage: FREQ: Q3 WEEKS FOR 4 CYCLES
     Route: 042
     Dates: start: 20220526
  5. YERVOY [Suspect]
     Active Substance: IPILIMUMAB
     Dosage: FOR 4 CYCLES
     Route: 042
     Dates: start: 20220526, end: 20220804

REACTIONS (25)
  - Immune-mediated enterocolitis [Unknown]
  - Arrhythmia [Unknown]
  - Off label use [Unknown]
  - Hypotension [Unknown]
  - Dysphagia [Unknown]
  - Temperature intolerance [Unknown]
  - Increased appetite [Unknown]
  - Gait disturbance [Recovering/Resolving]
  - Muscular weakness [Recovering/Resolving]
  - Musculoskeletal stiffness [Unknown]
  - Diarrhoea [Not Recovered/Not Resolved]
  - Headache [Unknown]
  - Decreased appetite [Unknown]
  - Nausea [Unknown]
  - Somnolence [Unknown]
  - Peripheral swelling [Recovering/Resolving]
  - Balance disorder [Recovering/Resolving]
  - Condition aggravated [Unknown]
  - Malaise [Recovering/Resolving]
  - Lethargy [Unknown]
  - Inappropriate schedule of product administration [Unknown]
  - Myalgia [Unknown]
  - Abdominal pain upper [Unknown]
  - Abdominal tenderness [Unknown]
  - Blood pressure systolic increased [Unknown]

NARRATIVE: CASE EVENT DATE: 20220526
